FAERS Safety Report 5291232-1 (Version None)
Quarter: 2007Q2

REPORT INFORMATION
  Report Type: 
  Country: None (occurrence: None)
  Receive Date: 20070409
  Receipt Date: 20070402
  Transmission Date: 20071010
  Serious: Yes (Other)
  Sender: FDA-Public Use
  Company Number: GB-PFIZER INC-2007022803

PATIENT
  Age: 14 Year
  Sex: Male
  Weight: 34 kg

DRUGS (4)
  1. SOLU-CORTEF [Suspect]
  2. INFLIXIMAB [Suspect]
     Indication: CROHN'S DISEASE
  3. AZATHIOPRINE [Concomitant]
     Route: 048
  4. OMEPRAZOLE [Concomitant]
     Route: 048

REACTIONS (2)
  - GRAND MAL CONVULSION [None]
  - REVERSIBLE POSTERIOR LEUKOENCEPHALOPATHY SYNDROME [None]
